FAERS Safety Report 12588470 (Version 1)
Quarter: 2016Q3

REPORT INFORMATION
  Report Type: Spontaneous
  Country: US (occurrence: US)
  Receive Date: 20160725
  Receipt Date: 20160725
  Transmission Date: 20161109
  Serious: No
  Sender: FDA-Public Use
  Company Number: US-JNJFOC-20160626803

PATIENT
  Age: 81 Year
  Sex: Female
  Weight: 64.86 kg

DRUGS (2)
  1. TYLENOL 8 HR ARTHRITIS PAIN [Suspect]
     Active Substance: ACETAMINOPHEN
     Route: 048
  2. TYLENOL 8 HR ARTHRITIS PAIN [Suspect]
     Active Substance: ACETAMINOPHEN
     Indication: ANALGESIC THERAPY
     Dosage: 2 TABLETS, EVERY 6 HOURS FOR FIRST FEW DAYS, NOW TAKING TWICE A DAY
     Route: 048
     Dates: start: 20160605

REACTIONS (3)
  - Inappropriate schedule of drug administration [Unknown]
  - Product expiration date issue [Unknown]
  - Product lot number issue [Unknown]

NARRATIVE: CASE EVENT DATE: 20160605
